FAERS Safety Report 4500149-9 (Version None)
Quarter: 2004Q4

REPORT INFORMATION
  Report Type: 
  Country: None (occurrence: None)
  Receive Date: 20041112
  Receipt Date: 20041105
  Transmission Date: 20050328
  Serious: Yes (Death)
  Sender: FDA-Public Use
  Company Number: US-ROCHE-385817

PATIENT
  Sex: Female

DRUGS (2)
  1. TORADOL [Suspect]
     Indication: DRUG USE FOR UNKNOWN INDICATION
     Dosage: MANUFACTURER UNKNOWN.
     Route: 042
     Dates: start: 19970615, end: 19970615
  2. ASPIRIN [Concomitant]
     Dates: end: 19970615

REACTIONS (2)
  - HAEMORRHAGE [None]
  - RENAL FAILURE [None]
